FAERS Safety Report 4415523-9 (Version None)
Quarter: 2004Q3

REPORT INFORMATION
  Report Type: 
  Country: None (occurrence: None)
  Receive Date: 20040730
  Receipt Date: 20040716
  Transmission Date: 20050211
  Serious: Yes (Hospitalization)
  Sender: FDA-Public Use
  Company Number: F01200402016

PATIENT
  Age: 68 Year
  Sex: Male

DRUGS (2)
  1. (OXALIPLATIN) - SOLUTION - 220 MG [Suspect]
     Indication: NON-SMALL CELL LUNG CANCER
     Dosage: 220 MG Q3W (CUMULATIVE DOSE : 1320 MG) INTRAVENOUS NOS
     Route: 042
     Dates: start: 20040401, end: 20040401
  2. (GEMCITABINE) - SOLUTION - 2112 MG [Suspect]
     Dosage: 2112 MG ON DAY 1 AND DAY 8, EVERY 3 WEEKS. (CUMULATIVE DOSE : 25344 MG) INTRAVENOUS NOS
     Route: 042
     Dates: start: 20040401, end: 20040401

REACTIONS (1)
  - LEFT VENTRICULAR FAILURE [None]
